FAERS Safety Report 25077813 (Version 1)
Quarter: 2025Q1

REPORT INFORMATION
  Report Type: Spontaneous
  Country: AT (occurrence: AT)
  Receive Date: 20250314
  Receipt Date: 20250314
  Transmission Date: 20250409
  Serious: Yes (Hospitalization)
  Sender: BOEHRINGER INGELHEIM
  Company Number: AT-BoehringerIngelheim-2025-BI-013984

PATIENT
  Sex: Male

DRUGS (5)
  1. TIOTROPIUM [Suspect]
     Active Substance: TIOTROPIUM
     Indication: Product used for unknown indication
  2. FENOTEROL\IPRATROPIUM BROMIDE [Suspect]
     Active Substance: FENOTEROL\IPRATROPIUM BROMIDE
     Indication: Product used for unknown indication
  3. Salmeterol / Fluticason [Concomitant]
     Indication: Product used for unknown indication
  4. FLUTICASONE [Concomitant]
     Active Substance: FLUTICASONE
     Indication: Product used for unknown indication
  5. ROFLUMILAST [Concomitant]
     Active Substance: ROFLUMILAST
     Indication: Product used for unknown indication

REACTIONS (15)
  - Respiratory failure [Unknown]
  - Chronic obstructive pulmonary disease [Recovered/Resolved]
  - Atrial fibrillation [Unknown]
  - Cardiac failure [Unknown]
  - Pulmonary function test decreased [Unknown]
  - Coronary artery disease [Unknown]
  - Chronic kidney disease [Unknown]
  - Chronic obstructive pulmonary disease [Recovered/Resolved]
  - Hiatus hernia [Unknown]
  - Diabetic neuropathy [Unknown]
  - Osteoporosis [Unknown]
  - Sleep apnoea syndrome [Unknown]
  - Nasal polyps [Unknown]
  - General physical health deterioration [Unknown]
  - Asthma [Unknown]

NARRATIVE: CASE EVENT DATE: 20220101
